FAERS Safety Report 6931365-4 (Version None)
Quarter: 2010Q3

REPORT INFORMATION
  Report Type: 
  Country: None (occurrence: None)
  Receive Date: 20100819
  Receipt Date: 20100810
  Transmission Date: 20110219
  Serious: No
  Sender: FDA-Public Use
  Company Number: US-US-EMD SERONO, INC.-7014136

PATIENT
  Sex: Male

DRUGS (10)
  1. REBIF [Suspect]
     Indication: MULTIPLE SCLEROSIS
     Route: 058
     Dates: start: 20060531
  2. REBIF [Suspect]
     Route: 058
  3. METFORMIN HCL [Concomitant]
     Indication: TYPE 2 DIABETES MELLITUS
     Route: 048
     Dates: start: 19980101
  4. LYRICA [Concomitant]
     Indication: MULTIPLE SCLEROSIS
  5. LYRICA [Concomitant]
     Indication: MUSCLE SPASMS
  6. LANTUS [Concomitant]
     Indication: DIABETES MELLITUS
     Dates: start: 19980101
  7. UNSPECIFIED INSULIN [Concomitant]
     Indication: TYPE 2 DIABETES MELLITUS
  8. SIMCOR [Concomitant]
     Indication: BLOOD CHOLESTEROL INCREASED
     Route: 048
  9. HIGH BLOOD PRESSURE MED [Concomitant]
     Indication: PROPHYLAXIS
  10. PAIN MEDICATION [Concomitant]
     Indication: PREMEDICATION

REACTIONS (10)
  - DRUG ADMINISTRATION ERROR [None]
  - FEELING HOT [None]
  - INFLUENZA LIKE ILLNESS [None]
  - INJECTION SITE DISCOLOURATION [None]
  - INJECTION SITE INDURATION [None]
  - INJECTION SITE REACTION [None]
  - PAIN [None]
  - POOR PERIPHERAL CIRCULATION [None]
  - THYROID DISORDER [None]
  - WEIGHT DECREASED [None]
